FAERS Safety Report 4798389-7 (Version None)
Quarter: 2005Q4

REPORT INFORMATION
  Report Type: 
  Country: None (occurrence: None)
  Receive Date: 20051014
  Receipt Date: 20051003
  Transmission Date: 20060501
  Serious: Yes (Other)
  Sender: FDA-Public Use
  Company Number: US-GLAXOSMITHKLINE-A0576806A

PATIENT
  Age: 61 Year
  Sex: Female
  Weight: 59 kg

DRUGS (3)
  1. ECOTRIN REGULAR STRENGTH TABLETS [Suspect]
     Indication: PAIN
     Dosage: 2TAB TWO TIMES PER WEEK
     Route: 048
     Dates: start: 20030101
  2. ACTONEL [Concomitant]
     Route: 048
  3. ALLEGRA-D 12 HOUR [Concomitant]
     Route: 048

REACTIONS (2)
  - CUTANEOUS VASCULITIS [None]
  - RASH MACULAR [None]
